FAERS Safety Report 8435787 (Version 6)
Quarter: 2013Q1

REPORT INFORMATION
  Report Type: Spontaneous
  Country: US (occurrence: US)
  Receive Date: 20120301
  Receipt Date: 20130110
  Transmission Date: 20140127
  Serious: Yes (Death, Hospitalization, Other)
  Sender: FDA-Public Use
  Company Number: PHEH2005US014206

PATIENT
  Age: 74 Year
  Sex: Male
  Weight: 84.35 kg

DRUGS (44)
  1. AREDIA [Suspect]
     Indication: PLASMA CELL MYELOMA
     Dosage: 90 MG, QMO
     Dates: start: 19991006
  2. PREVACID [Concomitant]
     Dosage: 30 MG, BID
     Dates: start: 20040603
  3. OXYCONTIN [Concomitant]
     Dosage: 20 MG, UNK
  4. PREDNISONE [Concomitant]
  5. OXYCODONE [Concomitant]
     Dosage: 20 MG, Q12H
     Dates: start: 20040702
  6. TAMSULOSIN HYDROCHLORIDE [Concomitant]
  7. ALLOPURINOL [Concomitant]
     Dosage: 300 MG, QD
     Dates: start: 20030630
  8. LORAZEPAM [Concomitant]
     Dosage: 0.5 MG, Q6H
     Dates: start: 20030630
  9. ASPIRIN ^BAYER^ [Concomitant]
     Dosage: 81 MG, QD
     Dates: start: 20071024
  10. FLOMAX ^BOEHRINGER INGELHEIM^ [Concomitant]
     Dosage: 0.4 MG, BID
     Dates: start: 20030630
  11. PROCHLORPERAZINE MALEATE [Concomitant]
     Dosage: 10 MG, BID
     Dates: start: 20051019
  12. PRILOSEC [Concomitant]
  13. HYDROCODONE [Concomitant]
  14. AVODART [Concomitant]
  15. REVLIMID [Concomitant]
     Dosage: 10 MG, QMO
  16. DECADRON [Concomitant]
     Dosage: 60 MG, UNK
  17. NORTRIPTYLINE [Concomitant]
  18. COUMADIN [Concomitant]
  19. LENALIDOMIDE [Concomitant]
     Dosage: 25 MG, QD
     Route: 048
  20. LENALIDOMIDE [Concomitant]
     Dosage: 10 MG, QD
  21. DEXAMETHASONE [Concomitant]
     Dosage: 40 MG, QD
     Route: 048
  22. DEXAMETHASONE [Concomitant]
     Dosage: 16 MG, QD
  23. PAMIDRONATE DISODIUM [Concomitant]
  24. PROTON PUMP INHIBITORS [Concomitant]
     Route: 048
  25. LEVAQUIN [Concomitant]
     Dosage: 500 MG, QD
     Route: 048
  26. CLARITIN [Concomitant]
  27. HEPARIN [Concomitant]
  28. CHEMOTHERAPEUTICS NOS [Concomitant]
  29. OMEGA 3 [Concomitant]
  30. VITAMIN E [Concomitant]
  31. COMPAZINE [Concomitant]
  32. MULTIVITAMINS [Concomitant]
  33. ICAPS [Concomitant]
  34. CLARINEX                                /USA/ [Concomitant]
  35. TYLENOL [Concomitant]
  36. REGLAN                                  /USA/ [Concomitant]
  37. CALCIUM [Concomitant]
  38. LASIX [Concomitant]
  39. DILTIAZEM [Concomitant]
  40. AGGRENOX [Concomitant]
  41. AMBIEN [Concomitant]
  42. ADVAIR [Concomitant]
  43. SIMVASTATIN [Concomitant]
  44. VITAMIN D [Concomitant]

REACTIONS (103)
  - Death [Fatal]
  - Pneumonia [Unknown]
  - Gastritis erosive [Unknown]
  - Gastrooesophageal reflux disease [Unknown]
  - Candida infection [Unknown]
  - Oesophagitis [Unknown]
  - Chest discomfort [Unknown]
  - Stasis dermatitis [Unknown]
  - Gastrointestinal haemorrhage [Unknown]
  - Depression [Unknown]
  - Osteonecrosis of jaw [Unknown]
  - Sinusitis [Not Recovered/Not Resolved]
  - Oral discomfort [Not Recovered/Not Resolved]
  - Anxiety [Unknown]
  - General physical health deterioration [Unknown]
  - Decreased interest [Unknown]
  - Toothache [Unknown]
  - Tenderness [Unknown]
  - Impaired healing [Unknown]
  - Tooth disorder [Unknown]
  - Pain [Unknown]
  - Walking aid user [Unknown]
  - Impaired work ability [Unknown]
  - Tooth infection [Not Recovered/Not Resolved]
  - Haemorrhage [Unknown]
  - Cataract [Unknown]
  - Age-related macular degeneration [Unknown]
  - Plasma cell myeloma [Unknown]
  - Bone lesion [Unknown]
  - Urinary tract infection [Unknown]
  - Atrial fibrillation [Unknown]
  - Weight decreased [Unknown]
  - Memory impairment [Unknown]
  - Neuropathy peripheral [Unknown]
  - Blood pressure increased [Unknown]
  - Pancytopenia [Unknown]
  - Deep vein thrombosis [Unknown]
  - Small intestinal obstruction [Unknown]
  - Dysuria [Unknown]
  - Urinary retention [Unknown]
  - Feeling jittery [Unknown]
  - Bladder obstruction [Unknown]
  - Abdominal discomfort [Unknown]
  - Malaise [Unknown]
  - Urine flow decreased [Unknown]
  - Cerebral atrophy [Unknown]
  - Dementia [Unknown]
  - Confusional state [Unknown]
  - Venoocclusive disease [Unknown]
  - Atelectasis [Unknown]
  - Intervertebral disc degeneration [Unknown]
  - Seborrhoeic keratosis [Unknown]
  - Lung hyperinflation [Unknown]
  - Prostatomegaly [Unknown]
  - Haemorrhoids [Unknown]
  - Herpes zoster [Unknown]
  - Urinary tract obstruction [Unknown]
  - Squamous cell carcinoma of skin [Unknown]
  - Second primary malignancy [Unknown]
  - Interstitial lung disease [Unknown]
  - Chronic obstructive pulmonary disease [Unknown]
  - Cerebellar infarction [Unknown]
  - Deafness [Unknown]
  - Transient ischaemic attack [Unknown]
  - Intervertebral disc space narrowing [Unknown]
  - Kyphosis [Unknown]
  - Osteopenia [Unknown]
  - Arteriosclerosis [Unknown]
  - Subcutaneous haematoma [Unknown]
  - Astigmatism [Unknown]
  - Nocturia [Unknown]
  - Oedema peripheral [Unknown]
  - Palpitations [Unknown]
  - Onychomycosis [Unknown]
  - Onychalgia [Unknown]
  - Gastrointestinal disorder [Unknown]
  - Peripheral vascular disorder [Unknown]
  - Keratoacanthoma [Unknown]
  - Hyperkeratosis [Recovering/Resolving]
  - Phlebitis [Unknown]
  - Oral pain [Unknown]
  - Dysphagia [Unknown]
  - Sleep apnoea syndrome [Unknown]
  - Hypercholesterolaemia [Unknown]
  - Fall [Unknown]
  - Compression fracture [Unknown]
  - Hypertension [Unknown]
  - Coronary artery disease [Unknown]
  - Renal failure chronic [Unknown]
  - Essential thrombocythaemia [Unknown]
  - Chest pain [Unknown]
  - Aortic calcification [Unknown]
  - Aortic valve incompetence [Unknown]
  - Tricuspid valve incompetence [Unknown]
  - Bone cancer [Unknown]
  - Haematemesis [Unknown]
  - Monoclonal gammopathy [Unknown]
  - Cerebrovascular accident [Unknown]
  - Cutis laxa [Unknown]
  - Blindness [Unknown]
  - Fungal infection [Unknown]
  - Parkinson^s disease [Unknown]
  - Myocardial ischaemia [Unknown]
